FAERS Safety Report 7778835-7 (Version None)
Quarter: 2011Q3

REPORT INFORMATION
  Report Type: 
  Country: None (occurrence: None)
  Receive Date: 20110926
  Receipt Date: 20110915
  Transmission Date: 20111222
  Serious: Yes (Death, Hospitalization)
  Sender: FDA-Public Use
  Company Number: DE-ACTELION-A-CH2011-53496

PATIENT
  Sex: Male
  Weight: 60 kg

DRUGS (10)
  1. VITAMIN D [Concomitant]
  2. BISOPROLOL FUMARATE [Concomitant]
  3. ACYCLOVIR [Concomitant]
  4. TRACLEER [Suspect]
     Indication: PULMONARY ARTERIAL HYPERTENSION
     Dosage: UNK
     Route: 048
     Dates: start: 20081001
  5. CYCLOPHOSPHAMIDE [Concomitant]
  6. PREDNISONE [Concomitant]
  7. ASPIRIN [Concomitant]
  8. TAMSULOSIN HCL [Concomitant]
  9. GABAPENTIN [Concomitant]
  10. ACETYLCYSTEINE [Concomitant]

REACTIONS (6)
  - HERPES ZOSTER [None]
  - PNEUMONIA [None]
  - POST HERPETIC NEURALGIA [None]
  - PULMONARY OEDEMA [None]
  - RESPIRATORY FAILURE [None]
  - LUNG INFILTRATION [None]
